FAERS Safety Report 5310697-X (Version None)
Quarter: 2007Q2

REPORT INFORMATION
  Report Type: 
  Country: None (occurrence: None)
  Receive Date: 20070428
  Receipt Date: 20070417
  Transmission Date: 20071010
  Serious: Yes (Other)
  Sender: FDA-Public Use
  Company Number: US-PFIZER INC-2007030854

PATIENT
  Sex: Male
  Weight: 72.6 kg

DRUGS (2)
  1. CHANTIX [Suspect]
     Indication: SMOKING CESSATION THERAPY
     Dosage: FREQ:DAILY
     Route: 048
     Dates: start: 20070301
  2. NICOTINE [Concomitant]
     Route: 062

REACTIONS (3)
  - HEADACHE [None]
  - MACULAR OEDEMA [None]
  - VISION BLURRED [None]
